FAERS Safety Report 7808180-2 (Version None)
Quarter: 2011Q4

REPORT INFORMATION
  Report Type: 
  Country: None (occurrence: None)
  Receive Date: 20111011
  Receipt Date: 20111001
  Transmission Date: 20120403
  Serious: Yes (Hospitalization, Other)
  Sender: FDA-Public Use
  Company Number: US-MPIJNJ-2011-04227

PATIENT
  Age: 53 Year
  Sex: Female
  Weight: 69.7 kg

DRUGS (2)
  1. VELCADE [Suspect]
     Indication: BREAST CANCER
     Dosage: 1.6 MG/M2, CYCLIC
     Route: 040
     Dates: start: 20110729, end: 20110819
  2. FULVESTRANT [Suspect]
     Indication: BREAST CANCER
     Dosage: 500 MG, CYCLIC
     Route: 030
     Dates: start: 20110729, end: 20110812

REACTIONS (4)
  - PLEURAL EFFUSION [None]
  - HYPOALBUMINAEMIA [None]
  - LUNG INFECTION [None]
  - CHOLECYSTITIS [None]
